FAERS Safety Report 12739130 (Version 2)
Quarter: 2016Q4

REPORT INFORMATION
  Report Type: Report from Study
  Country: US (occurrence: US)
  Receive Date: 20160913
  Receipt Date: 20161014
  Transmission Date: 20170207
  Serious: No
  Sender: FDA-Public Use
  Company Number: PHEH2016US023071

PATIENT
  Sex: Female
  Weight: 62.96 kg

DRUGS (12)
  1. PAXIL [Concomitant]
     Active Substance: PAROXETINE HYDROCHLORIDE
     Indication: PRODUCT USED FOR UNKNOWN INDICATION
     Dosage: UNK UNK, PRN
     Route: 065
  2. KEPPRA [Concomitant]
     Active Substance: LEVETIRACETAM
     Indication: PRODUCT USED FOR UNKNOWN INDICATION
     Dosage: UNK UNK, PRN
     Route: 065
  3. MULTI VITAMIN [Concomitant]
     Active Substance: VITAMINS
     Indication: PRODUCT USED FOR UNKNOWN INDICATION
     Route: 065
  4. KENALOG [Concomitant]
     Active Substance: TRIAMCINOLONE ACETONIDE
     Indication: PRODUCT USED FOR UNKNOWN INDICATION
     Route: 065
  5. ONFI [Concomitant]
     Active Substance: CLOBAZAM
     Indication: PRODUCT USED FOR UNKNOWN INDICATION
     Route: 065
  6. FELBATOL [Concomitant]
     Active Substance: FELBAMATE
     Indication: PRODUCT USED FOR UNKNOWN INDICATION
     Route: 065
  7. DEPO-PROVERA [Concomitant]
     Active Substance: MEDROXYPROGESTERONE ACETATE
     Indication: PRODUCT USED FOR UNKNOWN INDICATION
     Route: 065
  8. APTIOM [Concomitant]
     Active Substance: ESLICARBAZEPINE ACETATE
     Indication: PRODUCT USED FOR UNKNOWN INDICATION
     Route: 065
  9. ATIVAN [Concomitant]
     Active Substance: LORAZEPAM
     Indication: PRODUCT USED FOR UNKNOWN INDICATION
     Route: 065
  10. AFINITOR [Suspect]
     Active Substance: EVEROLIMUS
     Indication: ASTROCYTOMA, LOW GRADE
     Dosage: 10 MG, QD
     Route: 048
     Dates: start: 20130106
  11. AFINITOR [Suspect]
     Active Substance: EVEROLIMUS
     Dosage: 10 MG, QD
     Route: 048
     Dates: start: 20110817
  12. VIMPAT [Concomitant]
     Active Substance: LACOSAMIDE
     Indication: PRODUCT USED FOR UNKNOWN INDICATION
     Route: 065

REACTIONS (3)
  - Lip swelling [Unknown]
  - Mouth ulceration [Not Recovered/Not Resolved]
  - Lip ulceration [Not Recovered/Not Resolved]
